FAERS Safety Report 8263902-4 (Version None)
Quarter: 2012Q2

REPORT INFORMATION
  Report Type: 
  Country: None (occurrence: None)
  Receive Date: 20120405
  Receipt Date: 20120403
  Transmission Date: 20120825
  Serious: Yes (Hospitalization, Other)
  Sender: FDA-Public Use
  Company Number: IT-BRISTOL-MYERS SQUIBB COMPANY-16464844

PATIENT
  Age: 73 Year
  Sex: Female

DRUGS (9)
  1. COUMADIN [Suspect]
     Indication: CARDIAC FAILURE
     Dosage: INTR ON 29FEB12.
     Route: 048
     Dates: start: 20110101
  2. BISOPROLOL FUMARATE [Concomitant]
  3. ALDACTONE [Concomitant]
  4. LASIX [Concomitant]
  5. PREDNISONE TAB [Concomitant]
     Dosage: TAB
  6. POTASSIUM CHLORIDE [Concomitant]
     Dosage: 600MG PROLONGED RELEASE TABLET
  7. LORAZEPAM [Concomitant]
  8. LEVOFLOXACIN [Suspect]
     Indication: PNEUMONIA
     Dosage: INTR ON 05MAR12.1 DOSAGE UNIT.
     Route: 048
     Dates: start: 20120225
  9. NEXIUM [Concomitant]

REACTIONS (2)
  - HYPOCOAGULABLE STATE [None]
  - PNEUMONIA [None]
